FAERS Safety Report 9486524 (Version 1)
Quarter: 2013Q3

REPORT INFORMATION
  Report Type: Spontaneous
  Country: US (occurrence: None)
  Receive Date: 20130827
  Receipt Date: 20130827
  Transmission Date: 20140515
  Serious: Yes (Other)
  Sender: FDA-Public Use
  Company Number: None

PATIENT
  Age: 33 Year
  Sex: Male
  Weight: 83.46 kg

DRUGS (1)
  1. AMBIEN [Suspect]
     Indication: SLEEP DISORDER THERAPY
     Dosage: 1/2 PILL AS NEEDED TAKEN BY MOUTH
     Route: 048
     Dates: start: 20130822, end: 20130823

REACTIONS (3)
  - Feeling of despair [None]
  - Suicidal ideation [None]
  - Wrong technique in drug usage process [None]
